FAERS Safety Report 5114686-X (Version None)
Quarter: 2006Q3

REPORT INFORMATION
  Report Type: 
  Country: None (occurrence: None)
  Receive Date: 20060926
  Receipt Date: 20060914
  Transmission Date: 20061208
  Serious: Yes (Hospitalization, Other)
  Sender: FDA-Public Use
  Company Number: US-JNJFOC-20060903606

PATIENT
  Sex: Female

DRUGS (15)
  1. REMICADE [Suspect]
     Route: 042
  2. REMICADE [Suspect]
     Route: 042
  3. REMICADE [Suspect]
     Indication: PSORIATIC ARTHROPATHY
     Route: 042
  4. DARVOCET [Suspect]
     Indication: PAIN
  5. CALCIUM GLUCONATE [Concomitant]
     Indication: OSTEOPOROSIS
     Route: 048
  6. FOSAMAX [Concomitant]
     Indication: OSTEOPOROSIS
  7. OSCAL D [Concomitant]
     Indication: OSTEOPOROSIS
  8. CENTRUM [Concomitant]
  9. METHOTREXATE [Concomitant]
     Indication: PSORIATIC ARTHROPATHY
  10. NORVASC [Concomitant]
  11. SINGULAIR [Concomitant]
  12. NOSE SPRAY [Concomitant]
     Route: 045
  13. MUCINEX [Concomitant]
  14. POTASSIUM [Concomitant]
  15. ASPIRIN [Concomitant]

REACTIONS (4)
  - ERYTHEMA [None]
  - INFLUENZA LIKE ILLNESS [None]
  - NEUROPATHY [None]
  - RESPIRATORY DISORDER [None]
